FAERS Safety Report 8491539-0 (Version None)
Quarter: 2012Q3

REPORT INFORMATION
  Report Type: 
  Country: None (occurrence: None)
  Receive Date: 20120706
  Receipt Date: 20120628
  Transmission Date: 20120928
  Serious: Yes (Other)
  Sender: FDA-Public Use
  Company Number: JP-JNJFOC-20120512530

PATIENT
  Age: 90 Year
  Sex: Female

DRUGS (8)
  1. TRAMADOL HCL [Suspect]
     Route: 048
     Dates: start: 20120613
  2. TRAMADOL HCL [Suspect]
     Indication: PAIN
     Dosage: 2 DF FOUR PER DAY
     Route: 048
  3. ENALAPRIL MALEATE [Concomitant]
     Indication: HYPERTENSION
     Route: 048
  4. WARFARIN SODIUM [Concomitant]
     Route: 048
  5. MEXIRATE [Concomitant]
     Route: 048
  6. TRAMADOL HCL [Suspect]
     Indication: COMPRESSION FRACTURE
     Dosage: 2 DF FOUR PER DAY
     Route: 048
  7. TRAMADOL HCL [Suspect]
     Route: 048
     Dates: start: 20120613
  8. NORVASC [Concomitant]
     Indication: HYPERTENSION
     Route: 048

REACTIONS (1)
  - RENAL IMPAIRMENT [None]
